FAERS Safety Report 5606570-X (Version None)
Quarter: 2008Q1

REPORT INFORMATION
  Report Type: 
  Country: None (occurrence: None)
  Receive Date: 20080129
  Receipt Date: 20080117
  Transmission Date: 20080703
  Serious: Yes (Hospitalization, Other)
  Sender: FDA-Public Use
  Company Number: IN-WYE-H02195208

PATIENT
  Sex: Male
  Weight: 85 kg

DRUGS (4)
  1. CEFTRIAXONE [Suspect]
     Indication: ABDOMINAL INFECTION
     Route: 042
     Dates: start: 20080104, end: 20080108
  2. DICLOFENAC SODIUM [Concomitant]
     Indication: ABDOMINAL PAIN
     Route: 042
     Dates: start: 20080104, end: 20080105
  3. RANITIDINE [Concomitant]
     Indication: ABDOMINAL PAIN
     Route: 042
     Dates: start: 20080104, end: 20080108
  4. METRONIDAZOLE HCL [Suspect]
     Indication: ABDOMINAL INFECTION
     Dosage: 500 MG, UNKNOWN FREQUENCY
     Route: 042
     Dates: start: 20080104, end: 20080108

REACTIONS (1)
  - SEPSIS [None]
